FAERS Safety Report 18995455 (Version 5)
Quarter: 2022Q2

REPORT INFORMATION
  Report Type: Other
  Country: US (occurrence: US)
  Receive Date: 20210311
  Receipt Date: 20220520
  Transmission Date: 20220721
  Serious: No
  Sender: FDA-Public Use
  Company Number: US-DECIPHERA PHARMACEUTICALS LLC-2020-US-000799

PATIENT
  Sex: Male

DRUGS (4)
  1. QINLOCK [Suspect]
     Active Substance: RIPRETINIB
     Indication: Gastrointestinal stromal tumour
     Dosage: 150 MILLIGRAM, QD
     Route: 048
     Dates: start: 20201210
  2. QINLOCK [Suspect]
     Active Substance: RIPRETINIB
     Dosage: 150 MILLIGRAM, QD
     Route: 048
  3. QINLOCK [Suspect]
     Active Substance: RIPRETINIB
     Dosage: 50 UNK
     Route: 048
  4. QINLOCK [Suspect]
     Active Substance: RIPRETINIB
     Dosage: 150 MILLIGRAM, QD
     Route: 048

REACTIONS (8)
  - Skin exfoliation [Unknown]
  - Abdominal pain upper [Unknown]
  - Abdominal distension [Unknown]
  - Hyperkeratosis [Unknown]
  - Dry skin [Unknown]
  - Fatigue [Unknown]
  - Product dose omission issue [Unknown]
  - Underdose [Unknown]
